FAERS Safety Report 18844228 (Version 1)
Quarter: 2021Q1

REPORT INFORMATION
  Report Type: Report from Study
  Country: US (occurrence: US)
  Receive Date: 20210203
  Receipt Date: 20210203
  Transmission Date: 20210419
  Serious: No
  Sender: FDA-Public Use
  Company Number: US-EXELIXIS-CABO-20027180

PATIENT
  Sex: Male

DRUGS (1)
  1. CABOMETYX [Suspect]
     Active Substance: CABOZANTINIB S-MALATE
     Indication: RENAL CELL CARCINOMA
     Dosage: 20 MG WITH OUT FOOD
     Route: 048
     Dates: start: 201901

REACTIONS (4)
  - Abdominal discomfort [Unknown]
  - Ageusia [Not Recovered/Not Resolved]
  - Rash [Unknown]
  - Diarrhoea [Unknown]
